FAERS Safety Report 10142706 (Version 2)
Quarter: 2014Q2

REPORT INFORMATION
  Report Type: Spontaneous
  Country: CH (occurrence: None)
  Receive Date: 20140425
  Receipt Date: 20140501
  Transmission Date: 20141212
  Serious: Yes (Other)
  Sender: FDA-Public Use
  Company Number: PRED20140023

PATIENT
  Age: 75 Year
  Sex: Male

DRUGS (4)
  1. PREDNISONE [Suspect]
     Indication: WALDENSTROM^S MACROGLOBULINAEMIA
  2. CHLORAMBUCIL [Suspect]
     Indication: WALDENSTROM^S MACROGLOBULINAEMIA
  3. RITUXIMAB [Suspect]
     Indication: WALDENSTROM^S MACROGLOBULINAEMIA
     Dates: end: 2006
  4. CYCLOPHOSPHAMIDE [Suspect]
     Indication: WALDENSTROM^S MACROGLOBULINAEMIA
     Dates: start: 2007

REACTIONS (10)
  - Hypogammaglobulinaemia [None]
  - Pneumonia [None]
  - Rhodococcus test positive [None]
  - Lung infection [None]
  - Immune thrombocytopenic purpura [None]
  - Hodgkin^s disease [None]
  - Cell-mediated immune deficiency [None]
  - Exposure via inhalation [None]
  - Condition aggravated [None]
  - Disease recurrence [None]
